FAERS Safety Report 6187144-1 (Version None)
Quarter: 2009Q2

REPORT INFORMATION
  Report Type: 
  Country: None (occurrence: None)
  Receive Date: 20090512
  Receipt Date: 20090507
  Transmission Date: 20091009
  Serious: Yes (Death)
  Sender: FDA-Public Use
  Company Number: JP-AVENTIS-200911189JP

PATIENT
  Age: 72 Year
  Sex: Male
  Weight: 64 kg

DRUGS (9)
  1. TAXOTERE [Suspect]
     Route: 041
     Dates: start: 20090122, end: 20090331
  2. PREDNISOLONE [Concomitant]
     Route: 048
     Dates: start: 20090122, end: 20090414
  3. GLUFAST [Concomitant]
     Indication: DIABETES MELLITUS
     Route: 048
     Dates: start: 20070519, end: 20090414
  4. DIOVANE [Concomitant]
     Indication: HYPERTENSION
     Route: 048
     Dates: start: 20070519, end: 20090414
  5. NIFEDIPINE [Concomitant]
     Indication: HYPERTENSION
     Route: 048
  6. CRAVIT [Concomitant]
     Route: 048
     Dates: start: 20090408
  7. TENORMIN [Concomitant]
     Indication: HYPERTENSION
     Route: 048
  8. GRANISETRON HCL [Concomitant]
     Indication: PREMEDICATION
  9. DECADRON [Concomitant]
     Indication: PREMEDICATION

REACTIONS (1)
  - INTERSTITIAL LUNG DISEASE [None]
